FAERS Safety Report 17778630 (Version 1)
Quarter: 2020Q2

REPORT INFORMATION
  Report Type: Spontaneous
  Country: FR (occurrence: FR)
  Receive Date: 20200513
  Receipt Date: 20200513
  Transmission Date: 20200714
  Serious: Yes (Hospitalization)
  Sender: FDA-Public Use
  Company Number: FR-TEVA-2020-FR-1233709

PATIENT
  Age: 59 Year
  Sex: Male

DRUGS (3)
  1. VANCOMYCIN [Suspect]
     Active Substance: VANCOMYCIN
     Indication: FEBRILE BONE MARROW APLASIA
     Route: 042
     Dates: start: 20200413, end: 20200414
  2. TEICOPLANINE [Suspect]
     Active Substance: TEICOPLANIN
     Indication: FEBRILE BONE MARROW APLASIA
     Route: 042
     Dates: start: 20200414, end: 20200417
  3. TAZOCILLINE [Suspect]
     Active Substance: PIPERACILLIN SODIUM\TAZOBACTAM SODIUM
     Indication: FEBRILE BONE MARROW APLASIA
     Route: 042
     Dates: start: 20200411, end: 20200416

REACTIONS (2)
  - Condition aggravated [Recovering/Resolving]
  - Rash maculo-papular [Recovering/Resolving]

NARRATIVE: CASE EVENT DATE: 20200414
